FAERS Safety Report 5314572-6 (Version None)
Quarter: 2007Q2

REPORT INFORMATION
  Report Type: 
  Country: None (occurrence: None)
  Receive Date: 20070430
  Receipt Date: 20070430
  Transmission Date: 20071010
  Serious: Yes (Life-Threatening, Hospitalization, Disabling, Other)
  Sender: FDA-Public Use
  Company Number: None

PATIENT
  Age: 77 Year
  Sex: Male
  Weight: 75.7507 kg

DRUGS (2)
  1. GADOLINIUM 30MG/ML IV - JUNE 8, 06  2 - MRI MORE GADOLINIUM AUG 29, 06 [Suspect]
     Indication: BACK PAIN
     Dates: start: 20060608
  2. GADOLINIUM 30MG/ML IV - JUNE 8, 06  2 - MRI MORE GADOLINIUM AUG 29, 06 [Suspect]
     Indication: BACK PAIN
     Dates: start: 20060829

REACTIONS (5)
  - BLOOD CREATININE INCREASED [None]
  - BLOOD UREA INCREASED [None]
  - DIALYSIS [None]
  - MEDICATION ERROR [None]
  - NEPHROGENIC FIBROSING DERMOPATHY [None]
